FAERS Safety Report 25018180 (Version 4)
Quarter: 2025Q2

REPORT INFORMATION
  Report Type: Spontaneous
  Country: CH (occurrence: CH)
  Receive Date: 20250227
  Receipt Date: 20250512
  Transmission Date: 20250716
  Serious: Yes (Life-Threatening, Hospitalization, Other)
  Sender: NOVARTIS
  Company Number: CH-002147023-NVSC2025CH030659

PATIENT
  Age: 38 Year
  Sex: Female

DRUGS (4)
  1. KESIMPTA [Suspect]
     Active Substance: OFATUMUMAB
     Indication: Relapsing multiple sclerosis
     Dosage: 20 MG, QMO (ONCE A MONTH)
     Route: 058
     Dates: start: 202311
  2. KESIMPTA [Suspect]
     Active Substance: OFATUMUMAB
     Dosage: 20 MG, QMO (ONCE A MONTH)
     Route: 058
     Dates: start: 20250201
  3. DAFALGAN [Concomitant]
     Active Substance: ACETAMINOPHEN
     Indication: Product used for unknown indication
     Route: 065
  4. SODIUM PICOSULFATE [Concomitant]
     Active Substance: SODIUM PICOSULFATE
     Indication: Product used for unknown indication
     Route: 065

REACTIONS (4)
  - Peritonitis [Recovered/Resolved]
  - Tubo-ovarian abscess [Recovered/Resolved with Sequelae]
  - Ileus [Recovered/Resolved with Sequelae]
  - Postoperative adhesion [Unknown]

NARRATIVE: CASE EVENT DATE: 20241201
